FAERS Safety Report 24241469 (Version 2)
Quarter: 2024Q4

REPORT INFORMATION
  Report Type: Spontaneous
  Country: US (occurrence: US)
  Receive Date: 20240823
  Receipt Date: 20241001
  Transmission Date: 20250115
  Serious: No
  Sender: ROCHE
  Company Number: US-ROCHE-10000056504

PATIENT
  Age: 63 Year
  Sex: Male

DRUGS (4)
  1. XOLAIR [Suspect]
     Active Substance: OMALIZUMAB
     Indication: Sinus polyp
     Dosage: 2 OF 300MG AUTO INJECTORS, EVERY 2 WEEKS, UNDER THE SKIN
     Route: 058
     Dates: start: 20240506
  2. INSULIN NOS [Concomitant]
     Active Substance: INSULIN NOS
  3. INSULIN NOS [Concomitant]
     Active Substance: INSULIN NOS
  4. INSULIN NOS [Concomitant]
     Active Substance: INSULIN NOS

REACTIONS (6)
  - Incorrect dose administered [Unknown]
  - Device failure [Unknown]
  - Device defective [Unknown]
  - Product complaint [Unknown]
  - Wrong technique in device usage process [Unknown]
  - No adverse event [Unknown]

NARRATIVE: CASE EVENT DATE: 20240715
